FAERS Safety Report 4308953-7 (Version None)
Quarter: 2004Q1

REPORT INFORMATION
  Report Type: 
  Country: None (occurrence: None)
  Receive Date: 20040227
  Receipt Date: 20040216
  Transmission Date: 20041129
  Serious: Yes (Death)
  Sender: FDA-Public Use
  Company Number: JP-JNJFOC-20040200019

PATIENT
  Age: 33 Year
  Sex: Male
  Weight: 60 kg

DRUGS (7)
  1. REMICADE [Suspect]
     Indication: CROHN'S DISEASE
     Dosage: IN 1 AS NECESSARY, INTRAVENOUS DRIP; 300 MG 1 IN 1 AS NECESSARY, INTRAVENOUS DRIP
     Route: 041
     Dates: start: 20031002, end: 20031002
  2. IMURAN [Suspect]
     Indication: CROHN'S DISEASE
     Dosage: 50 MG, IN 1 DAY, ORAL
     Route: 048
     Dates: start: 20040117, end: 20040125
  3. PREDNISOLONE [Suspect]
     Indication: CROHN'S DISEASE
     Dosage: 60 MG, IN 1 DAY; 80 MG, IN 1 DAY; 100 MG, IN 1 DAY; 120 MG, IN 1 DAY
     Dates: start: 20030926, end: 20031107
  4. PREDNISOLONE [Suspect]
     Indication: CROHN'S DISEASE
     Dosage: 60 MG, IN 1 DAY; 80 MG, IN 1 DAY; 100 MG, IN 1 DAY; 120 MG, IN 1 DAY
     Dates: start: 20031108, end: 20031204
  5. PREDNISOLONE [Suspect]
     Indication: CROHN'S DISEASE
     Dosage: 60 MG, IN 1 DAY; 80 MG, IN 1 DAY; 100 MG, IN 1 DAY; 120 MG, IN 1 DAY
     Dates: start: 20031205, end: 20040119
  6. PREDNISOLONE [Suspect]
     Indication: CROHN'S DISEASE
     Dosage: 60 MG, IN 1 DAY; 80 MG, IN 1 DAY; 100 MG, IN 1 DAY; 120 MG, IN 1 DAY
     Dates: start: 20040120, end: 20040127
  7. SALAZOPYRIN (SULFASALAZINE) TABLETS [Concomitant]

REACTIONS (10)
  - BLOOD PRESSURE DECREASED [None]
  - DEPRESSED LEVEL OF CONSCIOUSNESS [None]
  - DRUG INEFFECTIVE [None]
  - GENERAL PHYSICAL HEALTH DETERIORATION [None]
  - MELAENA [None]
  - OPPORTUNISTIC INFECTION [None]
  - OXYGEN SATURATION DECREASED [None]
  - PYREXIA [None]
  - RESPIRATORY ARREST [None]
  - SEPSIS [None]
